FAERS Safety Report 8833222 (Version 2)
Quarter: 2013Q3

REPORT INFORMATION
  Report Type: Report from Study
  Country: BR (occurrence: BR)
  Receive Date: 20121010
  Receipt Date: 20130709
  Transmission Date: 20140515
  Serious: Yes (Other)
  Sender: FDA-Public Use
  Company Number: PHHY2012BR088855

PATIENT
  Age: 58 Year
  Sex: Female

DRUGS (2)
  1. ACLASTA [Suspect]
     Indication: OSTEOPOROSIS
     Dosage: 5 MG
     Route: 042
     Dates: start: 201207
  2. AZATIOPRINA [Concomitant]
     Dosage: UNK

REACTIONS (8)
  - Facial pain [Not Recovered/Not Resolved]
  - Swelling face [Not Recovered/Not Resolved]
  - Paraesthesia [Not Recovered/Not Resolved]
  - Coeliac disease [Unknown]
  - Nodule [Recovered/Resolved]
  - Arthropathy [Not Recovered/Not Resolved]
  - Chills [Not Recovered/Not Resolved]
  - Rash macular [Not Recovered/Not Resolved]
